FAERS Safety Report 4273261-X (Version None)
Quarter: 2004Q1

REPORT INFORMATION
  Report Type: 
  Country: None (occurrence: None)
  Receive Date: 20040116
  Receipt Date: 20040112
  Transmission Date: 20041129
  Serious: Yes (Life-Threatening)
  Sender: FDA-Public Use
  Company Number: GR-ROCHE-355774

PATIENT
  Age: 17 Year
  Sex: Male
  Weight: 60 kg

DRUGS (2)
  1. ISOTRETINOIN [Suspect]
     Indication: ACNE
     Route: 048
     Dates: start: 20031013, end: 20031209
  2. UNSPECIFIED LOCAL TREATMENT [Concomitant]
     Indication: ACNE
     Route: 050

REACTIONS (10)
  - FEMUR FRACTURE [None]
  - FOOT FRACTURE [None]
  - HAND FRACTURE [None]
  - INJURY [None]
  - INTRACRANIAL INJURY [None]
  - MULTIPLE FRACTURES [None]
  - POLYTRAUMATISM [None]
  - SOFT TISSUE INJURY [None]
  - SUICIDE ATTEMPT [None]
  - WRIST FRACTURE [None]
